FAERS Safety Report 23202945 (Version 1)
Quarter: 2023Q4

REPORT INFORMATION
  Report Type: Spontaneous
  Country: US (occurrence: US)
  Receive Date: 20231120
  Receipt Date: 20231120
  Transmission Date: 20240109
  Serious: No
  Sender: FDA-Public Use
  Company Number: US-ELI_LILLY_AND_COMPANY-US202311011016

PATIENT
  Age: 35 Year
  Sex: Female

DRUGS (1)
  1. VERZENIO [Interacting]
     Active Substance: ABEMACICLIB
     Indication: Breast cancer female
     Dosage: 100 MG, BID (ONE IN MORNING AND ONE IN EVENING)
     Route: 065
     Dates: start: 20230728

REACTIONS (2)
  - COVID-19 [Recovered/Resolved]
  - Drug interaction [Recovered/Resolved]

NARRATIVE: CASE EVENT DATE: 20231023
